FAERS Safety Report 8171769-8 (Version None)
Quarter: 2012Q1

REPORT INFORMATION
  Report Type: 
  Country: None (occurrence: None)
  Receive Date: 20120228
  Receipt Date: 20120222
  Transmission Date: 20120608
  Serious: Yes (Other)
  Sender: FDA-Public Use
  Company Number: US-GLAXOSMITHKLINE-A0963188A

PATIENT
  Age: 66 Year
  Sex: Female
  Weight: 55.8 kg

DRUGS (8)
  1. COUMADIN [Concomitant]
     Dosage: 2MG PER DAY
  2. REVATIO [Concomitant]
     Dosage: 20MG THREE TIMES PER DAY
  3. PANTOPRAZOLE [Concomitant]
     Dosage: 40MG PER DAY
  4. FUROSEMIDE [Concomitant]
     Dosage: 20MG PER DAY
  5. POTASSIUM CHLORIDE [Concomitant]
     Dosage: 10MEQ TWICE PER DAY
  6. LIPITOR [Concomitant]
     Dosage: 40MG PER DAY
  7. FLOLAN [Suspect]
     Indication: PULMONARY ARTERIAL HYPERTENSION
     Dosage: 11NGKM UNKNOWN
     Route: 065
     Dates: start: 20111215
  8. LEVOTHYROXINE SODIUM [Concomitant]
     Dosage: 50MCG PER DAY

REACTIONS (4)
  - DIARRHOEA [None]
  - FREQUENT BOWEL MOVEMENTS [None]
  - CATHETER SITE HAEMORRHAGE [None]
  - MEDICAL DEVICE COMPLICATION [None]
